FAERS Safety Report 19449429 (Version 1)
Quarter: 2021Q2

REPORT INFORMATION
  Report Type: Spontaneous
  Country: US (occurrence: US)
  Receive Date: 20210622
  Receipt Date: 20210622
  Transmission Date: 20210717
  Serious: No
  Sender: FDA-Public Use
  Company Number: US-PFIZER INC-2021326787

PATIENT
  Age: 62 Year
  Sex: Female
  Weight: 104.2 kg

DRUGS (1)
  1. MORPHINE SULFATE. [Suspect]
     Active Substance: MORPHINE SULFATE
     Dosage: UNK

REACTIONS (3)
  - Hyperthermia [Unknown]
  - Chills [Unknown]
  - Drug hypersensitivity [Unknown]
